FAERS Safety Report 18031353 (Version 1)
Quarter: 2020Q3

REPORT INFORMATION
  Report Type: Spontaneous
  Country: US (occurrence: US)
  Receive Date: 20200716
  Receipt Date: 20200716
  Transmission Date: 20201103
  Serious: Yes (Other)
  Sender: FDA-Public Use
  Company Number: None

PATIENT
  Age: 67 Year
  Sex: Male
  Weight: 80.1 kg

DRUGS (9)
  1. DEXTROMETHORPHAN?GUAINFENESIN 20MG [Concomitant]
     Dates: start: 20200714
  2. ACETAMINOPHEN( TYLENOL) TABLET 650 MG [Concomitant]
     Dates: start: 20200714
  3. CEFTRIAXONE 1 G IN NS [Concomitant]
     Dates: start: 20200714
  4. ONDANSETRON DISINTEGRATING TABLET 4 MG [Concomitant]
     Dates: start: 20200714
  5. AZITHROMYCIN 500 MG IN NS [Concomitant]
     Dates: start: 20200714
  6. HEPARIN 7,500 UNIT INJ [Concomitant]
     Dates: start: 20200714
  7. REMDESIVIR. [Suspect]
     Active Substance: REMDESIVIR
     Indication: COVID-19
     Dosage: ?          OTHER FREQUENCY:ONCE;?
     Route: 040
     Dates: start: 20200714, end: 20200715
  8. LEVOTHYROXIN TABLET 137 MCG [Concomitant]
     Dates: start: 20200715
  9. ALBUTEROL INHALER [Concomitant]
     Active Substance: ALBUTEROL
     Dates: start: 20200714

REACTIONS (2)
  - Therapy cessation [None]
  - Alanine aminotransferase increased [None]

NARRATIVE: CASE EVENT DATE: 20200715
